FAERS Safety Report 14561393 (Version 5)
Quarter: 2018Q3

REPORT INFORMATION
  Report Type: Spontaneous
  Country: US (occurrence: US)
  Receive Date: 20180222
  Receipt Date: 20180831
  Transmission Date: 20181010
  Serious: No
  Sender: FDA-Public Use
  Company Number: US-PFIZER INC-2018075309

PATIENT
  Age: 42 Year
  Sex: Female

DRUGS (4)
  1. IBRANCE [Suspect]
     Active Substance: PALBOCICLIB
     Dosage: UNK
     Dates: start: 2018, end: 2018
  2. IBRANCE [Suspect]
     Active Substance: PALBOCICLIB
     Dosage: 125 MG, CYCLIC (1 CAP QD X 21 DAYS, 7 DAYS OFF)
     Route: 048
     Dates: start: 20180123, end: 20180219
  3. IBRANCE [Suspect]
     Active Substance: PALBOCICLIB
     Dosage: 125 MG, CYCLIC (125 MG Q DAY X 21, 7 DAYS OFF)
     Dates: start: 20180122
  4. LETROZOLE. [Suspect]
     Active Substance: LETROZOLE
     Dosage: 2.5 MG, 1X/DAY (QD)
     Dates: end: 2018

REACTIONS (7)
  - Fatigue [Unknown]
  - Pain in extremity [Unknown]
  - Rash pruritic [Unknown]
  - Full blood count decreased [Unknown]
  - Nasopharyngitis [Unknown]
  - Drug dose omission [Unknown]
  - Nausea [Unknown]

NARRATIVE: CASE EVENT DATE: 2018
